FAERS Safety Report 10239798 (Version 2)
Quarter: 2014Q3

REPORT INFORMATION
  Report Type: Spontaneous
  Country: US (occurrence: None)
  Receive Date: 20140612
  Receipt Date: 20140813
  Transmission Date: 20150326
  Serious: Yes (Other)
  Sender: FDA-Public Use
  Company Number: 2014-US-006756

PATIENT
  Age: 62 Year
  Sex: Female
  Weight: 76.2 kg

DRUGS (13)
  1. VITAMIN D (COLECALCIFEROL) [Concomitant]
  2. CO Q 10 (UBIDECARENONE) [Concomitant]
  3. VITAMIN B COMPLEX (CYANOCOBALAMIN, NICOTINAMIDE, PYRIDOXINE HYDROCHLROIDE, RIBOFLAVIN, THIAMINE HYDROCHLORIDE) [Concomitant]
  4. ADDERALL [Concomitant]
     Active Substance: AMPHETAMINE ASPARTATE\AMPHETAMINE SULFATE\DEXTROAMPHETAMINE SACCHARATE\DEXTROAMPHETAMINE SULFATE
  5. PROBIOTIC (BIFIDOBACTERIUM LACTIS) [Concomitant]
  6. MAGNESIUM (MAGNESIUM CARBONATE) [Concomitant]
  7. XYREM [Suspect]
     Active Substance: SODIUM OXYBATE
     Indication: HYPERSOMNIA
     Route: 048
     Dates: start: 20140314
  8. PREMARIN (ESTROGENS CONJUGATED) [Concomitant]
  9. EXCEDRIN [Suspect]
     Active Substance: ACETAMINOPHEN\ASPIRIN\CAFFEINE
     Indication: HEADACHE
     Route: 048
  10. PROMETRIUM (PROGESTERONE) [Concomitant]
  11. MAXALT (RIZATRIPTAN BENZOATE) [Concomitant]
     Active Substance: RIZATRIPTAN BENZOATE
  12. ARMOUR THYROID (THYROID) [Concomitant]
  13. CYMBALTA [Concomitant]
     Active Substance: DULOXETINE HYDROCHLORIDE

REACTIONS (8)
  - Anaemia [None]
  - Artificial crown procedure [None]
  - Blood cortisol abnormal [None]
  - Dental caries [None]
  - Off label use [None]
  - Migraine [None]
  - Middle insomnia [None]
  - Ulcer haemorrhage [None]

NARRATIVE: CASE EVENT DATE: 201404
